FAERS Safety Report 14744585 (Version 3)
Quarter: 2019Q4

REPORT INFORMATION
  Report Type: Spontaneous
  Country: CA (occurrence: CA)
  Receive Date: 20180411
  Receipt Date: 20191213
  Transmission Date: 20200122
  Serious: Yes (Hospitalization, Other)
  Sender: FDA-Public Use
  Company Number: CA-ORION CORPORATION ORION PHARMA-TREX2018-1035

PATIENT
  Age: 65 Year
  Sex: Female

DRUGS (2)
  1. ARAVA [Concomitant]
     Active Substance: LEFLUNOMIDE
     Indication: RHEUMATOID ARTHRITIS
     Route: 065
     Dates: start: 2016, end: 2017
  2. METHOTREXATE (TRADE NAME UNKNOWN) [Suspect]
     Active Substance: METHOTREXATE
     Indication: RHEUMATOID ARTHRITIS
     Route: 065
     Dates: start: 201401

REACTIONS (5)
  - Cardiac pacemaker insertion [Recovering/Resolving]
  - Dysstasia [Unknown]
  - Heart valve replacement [Recovering/Resolving]
  - Muscular weakness [Unknown]
  - Hip fracture [Unknown]

NARRATIVE: CASE EVENT DATE: 201802
